FAERS Safety Report 5353035-9 (Version None)
Quarter: 2007Q2

REPORT INFORMATION
  Report Type: 
  Country: None (occurrence: None)
  Receive Date: 20070606
  Receipt Date: 20070518
  Transmission Date: 20071010
  Serious: Yes (Hospitalization, Other)
  Sender: FDA-Public Use
  Company Number: ENT 2007-0032

PATIENT
  Age: 78 Year
  Sex: Female

DRUGS (8)
  1. COMTAN [Suspect]
     Indication: PARKINSON'S DISEASE
     Dosage: 800 MG
     Route: 048
     Dates: end: 20050601
  2. COMTAN [Suspect]
     Indication: PARKINSON'S DISEASE
     Dosage: 800 MG
     Route: 048
     Dates: start: 20050601, end: 20060803
  3. COMTAN [Suspect]
     Indication: PARKINSON'S DISEASE
     Dosage: 800 MG
     Route: 048
     Dates: start: 20060809, end: 20060810
  4. MODOPAR [Concomitant]
  5. LAROXYL [Concomitant]
  6. DEROXAT [Concomitant]
  7. EQUANIL [Concomitant]
  8. SERESTA [Concomitant]

REACTIONS (11)
  - CALCINOSIS [None]
  - CHOLELITHIASIS [None]
  - DEHYDRATION [None]
  - DISEASE PROGRESSION [None]
  - ESCHERICHIA INFECTION [None]
  - FLATULENCE [None]
  - NEUROLEPTIC MALIGNANT SYNDROME [None]
  - PARKINSON'S DISEASE [None]
  - PYELONEPHRITIS [None]
  - RENAL CYST [None]
  - SPLEEN DISORDER [None]
